FAERS Safety Report 9661261 (Version 1)
Quarter: 2013Q4

REPORT INFORMATION
  Report Type: Spontaneous
  Country: GB (occurrence: GB)
  Receive Date: 20131031
  Receipt Date: 20131031
  Transmission Date: 20140711
  Serious: Yes (Disabling)
  Sender: FDA-Public Use
  Company Number: GB-TEVA-441185ISR

PATIENT
  Age: 32 Year
  Sex: Female
  Weight: 58.51 kg

DRUGS (1)
  1. AMITRIPTYLINE [Suspect]
     Indication: POST VIRAL FATIGUE SYNDROME
     Route: 048
     Dates: start: 201201, end: 201201

REACTIONS (2)
  - Paralysis [Recovered/Resolved]
  - Mental disorder [Recovered/Resolved]
